FAERS Safety Report 23644863 (Version 3)
Quarter: 2024Q2

REPORT INFORMATION
  Report Type: Spontaneous
  Country: SG (occurrence: SG)
  Receive Date: 20240318
  Receipt Date: 20240503
  Transmission Date: 20240716
  Serious: Yes (Other)
  Sender: FDA-Public Use
  Company Number: SG-OTSUKA-2023_022312

PATIENT
  Age: 51 Year
  Sex: Female

DRUGS (5)
  1. SAMSCA [Suspect]
     Active Substance: TOLVAPTAN
     Indication: Congenital cystic kidney disease
     Dosage: UNK
     Route: 065
     Dates: start: 20200707
  2. SAMSCA [Suspect]
     Active Substance: TOLVAPTAN
     Dosage: 45 MG, QD (IN THE MORNING)
     Route: 065
     Dates: start: 202308, end: 20230922
  3. SAMSCA [Suspect]
     Active Substance: TOLVAPTAN
     Dosage: 45 MG QD (MIDDAY)
     Route: 065
     Dates: start: 202308, end: 20230922
  4. SAMSCA [Suspect]
     Active Substance: TOLVAPTAN
     Dosage: 30 MG, QD 15 MG X 2 TABS  (EVENING)
     Route: 065
     Dates: start: 202308, end: 20230922
  5. SIMVASTATIN [Concomitant]
     Active Substance: SIMVASTATIN
     Indication: Product used for unknown indication
     Dosage: 5 MG, QD (EVERY MORNING)
     Route: 065

REACTIONS (6)
  - Alanine aminotransferase increased [Recovered/Resolved]
  - Red blood cell count decreased [Unknown]
  - Glomerular filtration rate decreased [Unknown]
  - Blood creatinine increased [Unknown]
  - Product use in unapproved indication [Unknown]
  - Off label use [Unknown]

NARRATIVE: CASE EVENT DATE: 20200707
